FAERS Safety Report 24974360 (Version 3)
Quarter: 2025Q1

REPORT INFORMATION
  Report Type: Report from Study
  Country: IT (occurrence: IT)
  Receive Date: 20250217
  Receipt Date: 20250311
  Transmission Date: 20250408
  Serious: Yes (Hospitalization, Other)
  Sender: ABBVIE
  Company Number: IT-ABBVIE-6131656

PATIENT
  Age: 30 Year
  Sex: Female

DRUGS (4)
  1. SKYRIZI [Suspect]
     Active Substance: RISANKIZUMAB-RZAA
     Indication: Crohn^s disease
     Dosage: LAST ADMIN DATE- 2024
     Route: 058
     Dates: start: 20240729
  2. SKYRIZI [Suspect]
     Active Substance: RISANKIZUMAB-RZAA
     Dosage: 360 MG OBI
     Route: 058
     Dates: start: 20250106
  3. CLOPIDOGREL [Concomitant]
     Active Substance: CLOPIDOGREL BISULFATE
     Indication: Anticoagulant therapy
  4. LANSOPRAZOLE [Concomitant]
     Active Substance: LANSOPRAZOLE
     Indication: Product used for unknown indication
     Route: 048

REACTIONS (8)
  - Atrial septal defect [Recovered/Resolved]
  - Cerebral ischaemia [Unknown]
  - Tremor [Recovered/Resolved]
  - White blood cell count increased [Recovered/Resolved]
  - Effusion [Unknown]
  - Bronchitis [Unknown]
  - Anger [Unknown]
  - Pneumonia [Unknown]

NARRATIVE: CASE EVENT DATE: 20241001
